FAERS Safety Report 7278627-1 (Version None)
Quarter: 2011Q1

REPORT INFORMATION
  Report Type: 
  Country: None (occurrence: None)
  Receive Date: 20110207
  Receipt Date: 20110203
  Transmission Date: 20110831
  Serious: No
  Sender: FDA-Public Use
  Company Number: US-PFIZER INC-2011025043

PATIENT
  Sex: Female
  Weight: 68 kg

DRUGS (4)
  1. CRESTOR [Concomitant]
     Indication: BLOOD CHOLESTEROL INCREASED
     Dosage: 10 MG, UNK
     Route: 048
  2. ASPIRIN [Concomitant]
     Dosage: 81 MG, 1X/DAY
     Route: 048
  3. PROTONIX [Suspect]
     Dosage: 40 MG, 1X/DAY
  4. MELOXICAM [Concomitant]
     Dosage: UNK

REACTIONS (2)
  - DEPRESSION [None]
  - INFLUENZA [None]
